FAERS Safety Report 9684412 (Version 2)
Quarter: 2013Q4

REPORT INFORMATION
  Report Type: Spontaneous
  Country: US (occurrence: US)
  Receive Date: 20131112
  Receipt Date: 20131120
  Transmission Date: 20140711
  Serious: No
  Sender: FDA-Public Use
  Company Number: US-PFIZER INC-2013321360

PATIENT
  Age: 45 Year
  Sex: Male

DRUGS (3)
  1. ENBREL [Suspect]
     Indication: PSORIATIC ARTHROPATHY
     Dosage: 50 MG, WEEKLY
     Dates: start: 20070101
  2. METHOTREXATE SODIUM [Suspect]
     Dosage: 675 MG, Q4WK
     Dates: start: 200701, end: 2007
  3. METHOTREXATE SODIUM [Suspect]
     Dosage: UNK
     Dates: start: 2007, end: 2007

REACTIONS (3)
  - Hepatic enzyme increased [Recovered/Resolved]
  - Abdominal pain [Not Recovered/Not Resolved]
  - Diarrhoea [Not Recovered/Not Resolved]
